FAERS Safety Report 8295431-6 (Version None)
Quarter: 2012Q2

REPORT INFORMATION
  Report Type: 
  Country: None (occurrence: None)
  Receive Date: 20120418
  Receipt Date: 20120411
  Transmission Date: 20120825
  Serious: Yes (Death, Other)
  Sender: FDA-Public Use
  Company Number: KR-CELGENEUS-286-50794-12041190

PATIENT
  Age: 47 Year
  Sex: Male

DRUGS (2)
  1. VIDAZA [Suspect]
     Route: 058
  2. VIDAZA [Suspect]
     Route: 065
     Dates: start: 20070101

REACTIONS (5)
  - NO THERAPEUTIC RESPONSE [None]
  - PYREXIA [None]
  - CEREBRAL HAEMORRHAGE [None]
  - NEUTROPHILIC PANNICULITIS [None]
  - RASH MACULAR [None]
